FAERS Safety Report 6072034-5 (Version None)
Quarter: 2009Q1

REPORT INFORMATION
  Report Type: 
  Country: None (occurrence: None)
  Receive Date: 20090205
  Receipt Date: 20090129
  Transmission Date: 20090719
  Serious: Yes (Other)
  Sender: FDA-Public Use
  Company Number: 2009SP002337

PATIENT
  Sex: 0

DRUGS (1)
  1. MIRALAX [Suspect]
     Dosage: PO
     Route: 048

REACTIONS (1)
  - FAECES DISCOLOURED [None]
